FAERS Safety Report 22182297 (Version 1)
Quarter: 2023Q2

REPORT INFORMATION
  Report Type: Spontaneous
  Country: US (occurrence: None)
  Receive Date: 20230405
  Receipt Date: 20230405
  Transmission Date: 20230721
  Serious: Yes (Other)
  Sender: FDA-Public Use
  Company Number: None

PATIENT
  Age: 67 Year
  Sex: Male
  Weight: 74.84 kg

DRUGS (22)
  1. XARELTO [Suspect]
     Active Substance: RIVAROXABAN
     Indication: Arterial disorder
     Dosage: FREQUENCY : AT BEDTIME;?
     Route: 048
     Dates: start: 202301
  2. XARELTO [Suspect]
     Active Substance: RIVAROXABAN
     Indication: Toe amputation
  3. FOLIC ACID [Concomitant]
     Active Substance: FOLIC ACID
  4. TOUJEO INSULIN [Concomitant]
  5. NOVOLOG [Concomitant]
     Active Substance: INSULIN ASPART
  6. LIPITOR [Concomitant]
     Active Substance: ATORVASTATIN CALCIUM
  7. FENOFIBRATE [Concomitant]
     Active Substance: FENOFIBRATE
  8. ENALAPRIL FOR KIDNEYS [Concomitant]
  9. METFORMIN [Concomitant]
     Active Substance: METFORMIN HYDROCHLORIDE
  10. TIMILOL [Concomitant]
  11. GABAPENTIN [Concomitant]
     Active Substance: GABAPENTIN
  12. VITAMIN D NOS [Concomitant]
     Active Substance: VITAMIN D NOS
  13. OMEGA [Concomitant]
  14. FLOMAX [Concomitant]
     Active Substance: TAMSULOSIN HYDROCHLORIDE
  15. XARELTO [Concomitant]
     Active Substance: RIVAROXABAN
  16. TRIAMCINOLONE [Concomitant]
     Active Substance: TRIAMCINOLONE
  17. OXYCODONE [Concomitant]
     Active Substance: OXYCODONE
  18. VITAMINS [Concomitant]
     Active Substance: VITAMINS
  19. ASPIRIN [Concomitant]
  20. ASPIRIN [Concomitant]
     Active Substance: ASPIRIN
  21. COLACE [Concomitant]
     Active Substance: DOCUSATE SODIUM
  22. HYDROCORTIZONE CREAM [Concomitant]

REACTIONS (4)
  - Erythema [None]
  - Blister [None]
  - Dry skin [None]
  - Therapy non-responder [None]
